FAERS Safety Report 7454541-3 (Version None)
Quarter: 2011Q2

REPORT INFORMATION
  Report Type: 
  Country: None (occurrence: None)
  Receive Date: 20110503
  Receipt Date: 20110426
  Transmission Date: 20111010
  Serious: Yes (Hospitalization)
  Sender: FDA-Public Use
  Company Number: PHHY2011US35364

PATIENT
  Sex: Female
  Weight: 130 kg

DRUGS (14)
  1. LIDODERM [Concomitant]
  2. FLOVENT [Concomitant]
  3. INSULIN [Concomitant]
  4. ULTRAM [Concomitant]
     Dosage: UNK
  5. PRAVASTATIN [Concomitant]
  6. COZAAR [Concomitant]
  7. PREVACID [Concomitant]
  8. POTASSIUM [Concomitant]
  9. FUROSEMIDE [Concomitant]
  10. FOLIC ACID [Concomitant]
  11. ACETAMINOPHEN [Concomitant]
  12. LEVOXYL [Concomitant]
  13. COUMADIN [Concomitant]
  14. RECLAST [Suspect]
     Indication: OSTEOPOROSIS POSTMENOPAUSAL
     Dosage: 5 MG, UNK
     Route: 042
     Dates: start: 20110331

REACTIONS (3)
  - BLOOD CALCIUM INCREASED [None]
  - BLOOD UREA INCREASED [None]
  - BLOOD CREATINE INCREASED [None]
